FAERS Safety Report 7273294-5 (Version None)
Quarter: 2011Q1

REPORT INFORMATION
  Report Type: 
  Country: None (occurrence: None)
  Receive Date: 20110203
  Receipt Date: 20101103
  Transmission Date: 20110831
  Serious: No
  Sender: FDA-Public Use
  Company Number: US-ABBOTT-10P-163-0683121-00

PATIENT
  Sex: Female

DRUGS (2)
  1. TIROSINT [Suspect]
     Indication: PRODUCT USED FOR UNKNOWN INDICATION
     Dates: start: 20101024
  2. SYNTHROID [Suspect]
     Indication: THYROIDECTOMY
     Dates: start: 20100701, end: 20101023

REACTIONS (6)
  - NAUSEA [None]
  - VOMITING [None]
  - FEELING ABNORMAL [None]
  - RESTLESSNESS [None]
  - INSOMNIA [None]
  - GASTROOESOPHAGEAL REFLUX DISEASE [None]
